FAERS Safety Report 9990296 (Version 1)
Quarter: 2014Q1

REPORT INFORMATION
  Report Type: Report from Study
  Country: US (occurrence: US)
  Receive Date: 20140310
  Receipt Date: 20140310
  Transmission Date: 20141002
  Serious: No
  Sender: FDA-Public Use
  Company Number: US-ABBVIE-13P-163-1134622-00

PATIENT
  Sex: Female

DRUGS (13)
  1. HUMIRA [Suspect]
     Indication: RHEUMATOID ARTHRITIS
     Dates: start: 2013
  2. ASPIRIN (E.C.) [Concomitant]
     Indication: CARDIOVASCULAR EVENT PROPHYLAXIS
  3. FIBERCON [Concomitant]
     Indication: CONSTIPATION
  4. FOLIC ACID [Concomitant]
     Indication: PRODUCT USED FOR UNKNOWN INDICATION
  5. GLUCOSAMINE CHONDROITIN [Concomitant]
     Indication: ARTHRALGIA
  6. PLAQUENIL [Concomitant]
     Indication: RHEUMATOID ARTHRITIS
  7. LISINOPRIL [Concomitant]
     Indication: HYPERTENSION
  8. METHOTREXATE [Concomitant]
     Indication: RHEUMATOID ARTHRITIS
  9. MULTIVITAMIN [Concomitant]
     Indication: PRODUCT USED FOR UNKNOWN INDICATION
     Dosage: 1 DAILY
  10. OCUVIT [Concomitant]
     Indication: PROPHYLAXIS
     Dosage: 1 DAILY
  11. OMEGA 3 RED [Concomitant]
     Indication: HYPERCHOLESTEROLAEMIA
     Dosage: 1 DAILY
  12. SIMVASTATIN [Concomitant]
     Indication: HYPERCHOLESTEROLAEMIA
  13. SALSALATE [Concomitant]
     Indication: ARTHRITIS

REACTIONS (1)
  - Injection site pain [Not Recovered/Not Resolved]
